FAERS Safety Report 23179071 (Version 1)
Quarter: 2023Q4

REPORT INFORMATION
  Report Type: Spontaneous
  Country: MY (occurrence: MY)
  Receive Date: 20231113
  Receipt Date: 20231113
  Transmission Date: 20240110
  Serious: Yes (Hospitalization)
  Sender: FDA-Public Use
  Company Number: MY-PFIZER INC-202300360013

PATIENT

DRUGS (1)
  1. ZITHROMAX [Suspect]
     Active Substance: AZITHROMYCIN DIHYDRATE
     Dosage: UNK

REACTIONS (2)
  - Infection [Recovered/Resolved]
  - Disease recurrence [Recovered/Resolved]
